FAERS Safety Report 23774597 (Version 1)
Quarter: 2024Q2

REPORT INFORMATION
  Report Type: Spontaneous
  Country: US (occurrence: None)
  Receive Date: 20240422
  Receipt Date: 20240422
  Transmission Date: 20240715
  Serious: Yes (Hospitalization)
  Sender: FDA-Public Use
  Company Number: None

PATIENT
  Age: 65 Year
  Sex: Female
  Weight: 85.5 kg

DRUGS (7)
  1. PRALUENT [Suspect]
     Active Substance: ALIROCUMAB
     Indication: Hyperlipidaemia
     Dosage: 1 ML Q 2 WEEKS SUBCUTANEOUS?
     Route: 058
     Dates: start: 20240206
  2. Propafanone [Concomitant]
  3. METOPROLOL [Concomitant]
     Active Substance: METOPROLOL
  4. XARELTO [Concomitant]
     Active Substance: RIVAROXABAN
  5. VITAMINS [Concomitant]
     Active Substance: VITAMINS
  6. ZINC [Concomitant]
     Active Substance: PYRITHIONE ZINC\ZINC\ZINC CHLORIDE
  7. VITAMIN D3 [Concomitant]
     Active Substance: CHOLECALCIFEROL

REACTIONS (3)
  - Atrial fibrillation [None]
  - Atrial flutter [None]
  - Blood glucose increased [None]

NARRATIVE: CASE EVENT DATE: 20240419
